FAERS Safety Report 7568809-3 (Version None)
Quarter: 2011Q2

REPORT INFORMATION
  Report Type: 
  Country: None (occurrence: None)
  Receive Date: 20110623
  Receipt Date: 20110617
  Transmission Date: 20111010
  Serious: Yes (Hospitalization)
  Sender: FDA-Public Use
  Company Number: FR-PFIZER INC-2007024553

PATIENT
  Age: 80 Year
  Sex: Male
  Weight: 82 kg

DRUGS (11)
  1. BISOPROLOL FUMARATE [Concomitant]
     Route: 048
     Dates: start: 20030101
  2. OMEPRAZOLE [Concomitant]
     Route: 048
     Dates: start: 20030101
  3. LASIX [Concomitant]
     Route: 048
     Dates: start: 20060820
  4. CUMADIN [Concomitant]
     Route: 048
     Dates: start: 20030101
  5. EPLERENONE [Suspect]
     Indication: CARDIAC FAILURE
     Dosage: 12.5 MG, DAILY
     Route: 048
     Dates: start: 20060919, end: 20070220
  6. EPLERENONE [Suspect]
     Dosage: 25 MG, DAILY
     Route: 048
     Dates: start: 20070221, end: 20070320
  7. PRAVASTATIN [Concomitant]
     Route: 048
     Dates: start: 20030101
  8. POTASSIUM CHLORIDE [Concomitant]
     Route: 048
     Dates: start: 20030101
  9. HEMIGOXINE NATIVELLE [Concomitant]
     Route: 048
     Dates: start: 20030101
  10. ATACAND [Concomitant]
     Route: 048
     Dates: start: 20030101
  11. EPLERENONE [Suspect]
     Dosage: 25 MG, DAILY
     Route: 048
     Dates: start: 20070619, end: 20101117

REACTIONS (2)
  - HYPERKALAEMIA [None]
  - BRONCHIAL DISORDER [None]
